FAERS Safety Report 14299562 (Version 1)
Quarter: 2017Q4

REPORT INFORMATION
  Report Type: Report from Study
  Country: None (occurrence: US)
  Receive Date: 20171219
  Receipt Date: 20171219
  Transmission Date: 20180321
  Serious: Yes (Hospitalization)
  Sender: FDA-Public Use
  Company Number: US-ABBVIE-17K-163-2193746-00

PATIENT
  Age: 70 Year
  Sex: Female

DRUGS (1)
  1. HUMIRA [Suspect]
     Active Substance: ADALIMUMAB
     Indication: ANKYLOSING SPONDYLITIS
     Route: 058

REACTIONS (10)
  - Condition aggravated [Unknown]
  - Fall [Recovering/Resolving]
  - Skin swelling [Unknown]
  - Hot flush [Unknown]
  - Haemorrhage [Unknown]
  - Cerebral thrombosis [Recovering/Resolving]
  - Amnesia [Unknown]
  - Brain injury [Recovering/Resolving]
  - Traumatic intracranial haemorrhage [Recovering/Resolving]
  - Hyperhidrosis [Unknown]

NARRATIVE: CASE EVENT DATE: 20171030
